FAERS Safety Report 25066103 (Version 2)
Quarter: 2025Q1

REPORT INFORMATION
  Report Type: Spontaneous
  Country: DE (occurrence: DE)
  Receive Date: 20250312
  Receipt Date: 20250324
  Transmission Date: 20250409
  Serious: Yes (Other)
  Sender: TEVA
  Company Number: DE-TEVA-VS-3307397

PATIENT
  Age: 26 Year
  Sex: Female

DRUGS (3)
  1. BACLOFEN [Suspect]
     Active Substance: BACLOFEN
     Indication: Relapsing-remitting multiple sclerosis
     Route: 065
  2. TIZANIDINE [Suspect]
     Active Substance: TIZANIDINE
     Indication: Relapsing-remitting multiple sclerosis
     Route: 065
  3. NABIXIMOLS [Suspect]
     Active Substance: NABIXIMOLS
     Indication: Relapsing-remitting multiple sclerosis
     Dosage: 12 SPRAYS MAINTAINED FOR TWO MONTHS
     Route: 065

REACTIONS (3)
  - Drug ineffective [Unknown]
  - Fall [Unknown]
  - Dizziness [Unknown]
